FAERS Safety Report 8099006 (Version 5)
Quarter: 2013Q1

REPORT INFORMATION
  Report Type: Spontaneous
  Country: US (occurrence: US)
  Receive Date: 20110819
  Receipt Date: 20130214
  Transmission Date: 20140127
  Serious: Yes (Hospitalization, Other)
  Sender: FDA-Public Use
  Company Number: US-BAYER-2011-073688

PATIENT
  Age: 42 Year
  Sex: Female

DRUGS (8)
  1. YASMIN [Suspect]
     Dosage: UNK
     Dates: start: 200204, end: 200308
  2. PAXIL [Concomitant]
     Indication: ANXIETY
     Dosage: UNK
     Dates: start: 2001, end: 2004
  3. MECLIZINE [Concomitant]
     Indication: DIZZINESS
     Dosage: UNK
     Dates: start: 200110, end: 200710
  4. CEPHALEXIN [Concomitant]
     Dosage: 500 MG, UNK
  5. GUAIFENESIN ER [Concomitant]
     Indication: SINUSITIS
     Dosage: 600 MG, UNK
  6. FLONASE [Concomitant]
     Indication: SINUSITIS
     Dosage: 0.05 %, UNK
  7. KEFLEX [Concomitant]
     Indication: SINUSITIS
  8. VICODIN [Concomitant]

REACTIONS (5)
  - Pulmonary embolism [Unknown]
  - Pulmonary infarction [None]
  - Deep vein thrombosis [Unknown]
  - Emotional distress [Unknown]
  - Injury [None]
